FAERS Safety Report 24936800 (Version 1)
Quarter: 2025Q1

REPORT INFORMATION
  Report Type: Spontaneous
  Country: US (occurrence: None)
  Receive Date: 20250205
  Receipt Date: 20250205
  Transmission Date: 20250409
  Serious: Yes (Life-Threatening, Hospitalization, Disabling)
  Sender: FDA-CTU
  Company Number: None

PATIENT
  Age: 30 Year
  Sex: Female
  Weight: 63 kg

DRUGS (3)
  1. DIETARY SUPPLEMENT [Suspect]
     Active Substance: DIETARY SUPPLEMENT
     Indication: Nerve injury
  2. DIETARY SUPPLEMENT [Suspect]
     Active Substance: DIETARY SUPPLEMENT
     Indication: Intervertebral disc protrusion
  3. TESTOSTERONE [Suspect]
     Active Substance: TESTOSTERONE

REACTIONS (8)
  - Pain [None]
  - Depression [None]
  - Anxiety [None]
  - Palpitations [None]
  - Autoimmune disorder [None]
  - Intentional product use issue [None]
  - Hepatic enzyme increased [None]
  - Condition aggravated [None]

NARRATIVE: CASE EVENT DATE: 20230101
